FAERS Safety Report 13237308 (Version 3)
Quarter: 2017Q1

REPORT INFORMATION
  Report Type: Spontaneous
  Country: TW (occurrence: TW)
  Receive Date: 20170215
  Receipt Date: 20170308
  Transmission Date: 20170428
  Serious: Yes (Death, Hospitalization)
  Sender: FDA-Public Use
  Company Number: TW-ABBVIE-17P-153-1869021-00

PATIENT
  Age: 67 Year
  Sex: Female

DRUGS (7)
  1. CELECOXIB. [Concomitant]
     Active Substance: CELECOXIB
     Indication: PRODUCT USED FOR UNKNOWN INDICATION
     Route: 048
     Dates: end: 20170208
  2. HYZAAR [Concomitant]
     Active Substance: HYDROCHLOROTHIAZIDE\LOSARTAN POTASSIUM
     Indication: PRODUCT USED FOR UNKNOWN INDICATION
     Route: 048
     Dates: end: 20170208
  3. TOFACITINIB [Concomitant]
     Active Substance: TOFACITINIB
     Indication: PRODUCT USED FOR UNKNOWN INDICATION
     Route: 048
  4. METHOTREXATE. [Concomitant]
     Active Substance: METHOTREXATE
     Indication: PRODUCT USED FOR UNKNOWN INDICATION
     Route: 048
     Dates: start: 2015, end: 20170208
  5. VIEKIRAX [Suspect]
     Active Substance: OMBITASVIR\PARITAPREVIR\RITONAVIR
     Indication: CHRONIC HEPATITIS C
     Dosage: 12.5MG/75MG/50MG
     Route: 048
     Dates: start: 20170125, end: 20170208
  6. EXVIERA [Suspect]
     Active Substance: DASABUVIR
     Indication: CHRONIC HEPATITIS C
     Route: 048
     Dates: start: 20170125, end: 20170208
  7. SULFASALAZINE. [Concomitant]
     Active Substance: SULFASALAZINE
     Indication: PRODUCT USED FOR UNKNOWN INDICATION
     Route: 048
     Dates: start: 2013, end: 20170208

REACTIONS (12)
  - Jaundice [Unknown]
  - Acute kidney injury [Unknown]
  - Sepsis [Fatal]
  - Bradycardia [Unknown]
  - Ascites [Unknown]
  - Pancytopenia [Unknown]
  - Malaise [Unknown]
  - Generalised oedema [Unknown]
  - Blood bilirubin increased [Unknown]
  - Hepatic failure [Unknown]
  - Haematochezia [Unknown]
  - Hepatorenal syndrome [Fatal]

NARRATIVE: CASE EVENT DATE: 20170208
